FAERS Safety Report 13162587 (Version 7)
Quarter: 2017Q3

REPORT INFORMATION
  Report Type: Spontaneous
  Country: US (occurrence: US)
  Receive Date: 20170130
  Receipt Date: 20170802
  Transmission Date: 20171127
  Serious: Yes (Death, Hospitalization, Other)
  Sender: FDA-Public Use
  Company Number: US-ASTELLAS-2017US002966

PATIENT
  Age: 96 Year
  Sex: Male

DRUGS (4)
  1. XTANDI [Suspect]
     Active Substance: ENZALUTAMIDE
     Indication: PROSTATE CANCER
     Route: 048
     Dates: start: 20160420
  2. BACTRIM [Suspect]
     Active Substance: SULFAMETHOXAZOLE\TRIMETHOPRIM
     Indication: CYSTITIS
     Dosage: UNK, TWICE DAILY
     Route: 065
     Dates: start: 20170425
  3. XTANDI [Suspect]
     Active Substance: ENZALUTAMIDE
     Dosage: 160 MG, ONCE DAILY (WITH OR WITHOUT FOOD AT THE SAME TIME EACH DAY)
     Route: 048
     Dates: start: 20161220
  4. SEPTRA [Suspect]
     Active Substance: SULFAMETHOXAZOLE\TRIMETHOPRIM
     Indication: CYSTITIS
     Dosage: UNK UNK, UNKNOWN FREQ.
     Route: 065

REACTIONS (11)
  - Pulmonary embolism [Unknown]
  - Gait disturbance [Unknown]
  - Pruritus [Unknown]
  - Dyspnoea [Unknown]
  - Accidental overdose [Unknown]
  - Epistaxis [Unknown]
  - Death [Fatal]
  - Rash erythematous [Unknown]
  - Cystitis [Unknown]
  - Influenza [Unknown]
  - Condition aggravated [Unknown]

NARRATIVE: CASE EVENT DATE: 20170426
